FAERS Safety Report 6762654-4 (Version None)
Quarter: 2010Q2

REPORT INFORMATION
  Report Type: 
  Country: None (occurrence: None)
  Receive Date: 20100609
  Receipt Date: 20100526
  Transmission Date: 20101027
  Serious: Yes (Other)
  Sender: FDA-Public Use
  Company Number: PHHY2010FR34914

PATIENT
  Age: 82 Year
  Sex: Female

DRUGS (4)
  1. IMATINIB [Suspect]
     Indication: CHRONIC MYELOID LEUKAEMIA
     Dosage: 400 MG, DAILY
  2. HYDROXYCARBAMIDE [Concomitant]
     Dosage: UNK
  3. HYDROXYCARBAMIDE [Concomitant]
     Dosage: 500 MG, 3 DAYS PER WEEK
  4. SALICYLIC ACID [Concomitant]
     Dosage: UNK

REACTIONS (4)
  - GENE MUTATION IDENTIFICATION TEST POSITIVE [None]
  - MYELOFIBROSIS [None]
  - SPLENOMEGALY [None]
  - THROMBOCYTOSIS [None]
